FAERS Safety Report 4375019-X (Version None)
Quarter: 2004Q2

REPORT INFORMATION
  Report Type: 
  Country: None (occurrence: None)
  Receive Date: 20040604
  Receipt Date: 20040512
  Transmission Date: 20050107
  Serious: Yes (Life-Threatening)
  Sender: FDA-Public Use
  Company Number: 28506

PATIENT
  Age: 79 Year
  Sex: Female

DRUGS (6)
  1. VEXOL [Suspect]
     Dosage: OPHT
     Route: 047
  2. SPIRAMYCINE/METRONIDAZOLE [Concomitant]
  3. TIMOLOL MALEATE [Concomitant]
  4. HYZAAR [Concomitant]
  5. LERCANIDIPINE [Concomitant]
  6. NIMESULIDE [Concomitant]

REACTIONS (3)
  - ASTHENIA [None]
  - COMA [None]
  - INFECTION [None]
